FAERS Safety Report 8297919-0 (Version None)
Quarter: 2012Q2

REPORT INFORMATION
  Report Type: 
  Country: None (occurrence: None)
  Receive Date: 20120419
  Receipt Date: 20120411
  Transmission Date: 20120825
  Serious: Yes (Hospitalization)
  Sender: FDA-Public Use
  Company Number: GB-BRISTOL-MYERS SQUIBB COMPANY-16442717

PATIENT
  Age: 66 Year
  Sex: Male
  Weight: 83 kg

DRUGS (15)
  1. IPILIMUMAB [Suspect]
     Indication: SMALL CELL LUNG CANCER STAGE UNSPECIFIED
     Dosage: LAST DOSE ON 27JAN12,NO OF CYCLES:5
     Dates: start: 20120105, end: 20120127
  2. OMEPRAZOLE [Concomitant]
     Route: 048
     Dates: start: 20091026
  3. BISOPROLOL FUMARATE [Concomitant]
     Dates: start: 20090810
  4. ACETAMINOPHEN [Concomitant]
     Dates: start: 20110810
  5. ETOPOSIDE [Suspect]
     Indication: SMALL CELL LUNG CANCER STAGE UNSPECIFIED
     Dosage: 06JAN12,LAST DOSE ON 24FEB12,NO OF CYCLES:5
     Dates: start: 20111124, end: 20120224
  6. ASPIRIN [Concomitant]
     Dates: start: 20090710
  7. ALBUTEROL [Concomitant]
     Dosage: 1DF= 2 PUFFS
     Route: 045
     Dates: start: 20120122
  8. SIMVASTATIN [Concomitant]
     Route: 048
     Dates: start: 20090910
  9. AMLODIPINE [Concomitant]
     Dates: start: 20091211
  10. LORAZEPAM [Concomitant]
     Dates: start: 20120220
  11. PREDNISOLONE [Concomitant]
     Dosage: DOSE:10MG, DC'D 20MAR12
     Dates: start: 20120223, end: 20120320
  12. NYSTATIN [Concomitant]
     Dates: start: 20120228
  13. DIPYRIDAMOLE [Concomitant]
     Dates: start: 20120122
  14. CARBOPLATIN [Suspect]
     Indication: SMALL CELL LUNG CANCER STAGE UNSPECIFIED
     Dosage: 06JAN12,LAST DOSE ON 24FEB12 650MG,NO OF CYCLES:5
     Dates: start: 20111124, end: 20120224
  15. RAMIPRIL [Concomitant]
     Route: 048
     Dates: start: 20100921

REACTIONS (5)
  - DYSPNOEA [None]
  - COLITIS [None]
  - ANAEMIA [None]
  - ILEITIS [None]
  - LUNG INFECTION [None]
